FAERS Safety Report 9312444 (Version 2)
Quarter: 2013Q3

REPORT INFORMATION
  Report Type: Spontaneous
  Country: US (occurrence: US)
  Receive Date: 20130528
  Receipt Date: 20130701
  Transmission Date: 20140515
  Serious: Yes (Other)
  Sender: FDA-Public Use
  Company Number: US-JNJFOC-20130513789

PATIENT
  Age: 56 Year
  Sex: Female

DRUGS (6)
  1. STELARA [Suspect]
     Indication: PSORIASIS
     Route: 058
     Dates: start: 20130531
  2. STELARA [Suspect]
     Indication: PSORIASIS
     Route: 058
     Dates: start: 20121114
  3. STELARA [Suspect]
     Indication: PSORIASIS
     Route: 058
     Dates: start: 200911
  4. ALCOHOL [Suspect]
     Indication: PRODUCT USED FOR UNKNOWN INDICATION
     Route: 065
  5. METHOTREXATE [Concomitant]
     Dosage: IN PART
     Route: 065
  6. SORIATANE [Concomitant]
     Dosage: IN PART
     Route: 065

REACTIONS (1)
  - Liver function test abnormal [Unknown]
